FAERS Safety Report 8591050-2 (Version None)
Quarter: 2012Q3

REPORT INFORMATION
  Report Type: 
  Country: None (occurrence: None)
  Receive Date: 20120813
  Receipt Date: 20120807
  Transmission Date: 20120928
  Serious: Yes (Life-Threatening, Hospitalization)
  Sender: FDA-Public Use
  Company Number: US-SANOFI-AVENTIS-2012SA056776

PATIENT
  Age: 53 Year
  Sex: Male
  Weight: 98.1 kg

DRUGS (7)
  1. XARELTO [Suspect]
     Indication: ANTICOAGULANT THERAPY
     Route: 065
     Dates: start: 20120503
  2. XARELTO [Suspect]
     Indication: CEREBROVASCULAR ACCIDENT PROPHYLAXIS
     Route: 065
     Dates: start: 20120503
  3. FLECAINIDE ACETATE [Concomitant]
     Indication: ATRIAL FIBRILLATION
  4. MULTAQ [Suspect]
     Route: 065
     Dates: start: 20120515, end: 20120515
  5. XARELTO [Suspect]
     Indication: ATRIAL FIBRILLATION
     Route: 065
     Dates: start: 20120503
  6. FUROSEMIDE [Concomitant]
  7. NEBIVOLOL [Concomitant]
     Indication: ATRIAL FIBRILLATION

REACTIONS (5)
  - CEREBROVASCULAR ACCIDENT [None]
  - ABDOMINAL PAIN [None]
  - DIARRHOEA [None]
  - OEDEMA PERIPHERAL [None]
  - PROTHROMBIN TIME PROLONGED [None]
